FAERS Safety Report 23146947 (Version 1)
Quarter: 2023Q4

REPORT INFORMATION
  Report Type: Spontaneous
  Country: US (occurrence: US)
  Receive Date: 20231106
  Receipt Date: 20231106
  Transmission Date: 20240109
  Serious: Yes (Death, Life-Threatening, Hospitalization, Other)
  Sender: FDA-Public Use
  Company Number: US-GLAXOSMITHKLINE-US2023GSK152800

PATIENT

DRUGS (2)
  1. LAMOTRIGINE [Suspect]
     Active Substance: LAMOTRIGINE
     Indication: Epilepsy
     Dosage: 75 MG
  2. LAMOTRIGINE [Suspect]
     Active Substance: LAMOTRIGINE
     Dosage: 100 MG

REACTIONS (32)
  - Eosinophilic myocarditis [Fatal]
  - Hepatic necrosis [Fatal]
  - Drug reaction with eosinophilia and systemic symptoms [Fatal]
  - Rash [Not Recovered/Not Resolved]
  - Rash pruritic [Not Recovered/Not Resolved]
  - Rash maculo-papular [Not Recovered/Not Resolved]
  - Lymphadenopathy [Unknown]
  - Leukocytosis [Unknown]
  - Eosinophilia [Unknown]
  - Malaise [Unknown]
  - Chills [Unknown]
  - Pyrexia [Unknown]
  - Nausea [Unknown]
  - Vomiting [Unknown]
  - Abdominal pain upper [Unknown]
  - Dyspnoea [Unknown]
  - Abdominal tenderness [Unknown]
  - Neutrophilia [Unknown]
  - Hyponatraemia [Unknown]
  - Cholangitis acute [Unknown]
  - Cardiac arrest [Fatal]
  - Thyroiditis [Fatal]
  - Cardiac failure [Fatal]
  - Pulmonary oedema [Fatal]
  - Effusion [Fatal]
  - Electrolyte imbalance [Fatal]
  - Hypoalbuminaemia [Fatal]
  - Mucosal haemorrhage [Fatal]
  - Hypersensitivity [Unknown]
  - Disease progression [Not Recovered/Not Resolved]
  - Ventricular fibrillation [Unknown]
  - Disease recurrence [Unknown]
